FAERS Safety Report 4916365-8 (Version None)
Quarter: 2006Q1

REPORT INFORMATION
  Report Type: 
  Country: None (occurrence: None)
  Receive Date: 20060217
  Receipt Date: 20051017
  Transmission Date: 20060701
  Serious: Yes (Hospitalization, Disabling)
  Sender: FDA-Public Use
  Company Number: US-MERCK-0510USA07799

PATIENT
  Age: 60 Year
  Sex: Female
  Weight: 68 kg

DRUGS (9)
  1. VIOXX [Suspect]
     Indication: ARTHRALGIA
     Route: 048
     Dates: start: 20000301, end: 20010917
  2. CARDIZEM [Concomitant]
     Route: 065
     Dates: start: 19960101, end: 20010917
  3. ZOLOFT [Concomitant]
     Indication: GENERALISED ANXIETY DISORDER
     Route: 065
     Dates: start: 19960101
  4. PREMARIN [Concomitant]
     Indication: HORMONE REPLACEMENT THERAPY
     Route: 065
     Dates: start: 19850101
  5. PRILOSEC [Concomitant]
     Route: 065
  6. PAXIL [Concomitant]
     Indication: GENERALISED ANXIETY DISORDER
     Route: 065
     Dates: start: 19960101
  7. LEXAPRO [Concomitant]
     Indication: GENERALISED ANXIETY DISORDER
     Route: 065
     Dates: start: 19960101
  8. ZOCOR [Concomitant]
     Indication: BLOOD CHOLESTEROL INCREASED
     Route: 065
     Dates: start: 19990101, end: 20030101
  9. TYLENOL [Concomitant]
     Indication: ANALGESIC EFFECT
     Route: 065
     Dates: start: 19900101

REACTIONS (4)
  - ARTHROPATHY [None]
  - BREAST OPERATION [None]
  - CORONARY ARTERY DISEASE [None]
  - MYOCARDIAL INFARCTION [None]
